FAERS Safety Report 17986202 (Version 1)
Quarter: 2020Q3

REPORT INFORMATION
  Report Type: Spontaneous
  Country: US (occurrence: US)
  Receive Date: 20200706
  Receipt Date: 20200706
  Transmission Date: 20201103
  Serious: No
  Sender: FDA-Public Use
  Company Number: US-NOVOPROD-725988

PATIENT
  Age: 24 Year
  Sex: Female
  Weight: 99.77 kg

DRUGS (1)
  1. RYBELSUS [Suspect]
     Active Substance: SEMAGLUTIDE
     Indication: DIABETES MELLITUS
     Dosage: ^5?10 IU^
     Route: 048
     Dates: start: 2019, end: 202002

REACTIONS (1)
  - Nausea [Not Recovered/Not Resolved]
